FAERS Safety Report 6641700-2 (Version None)
Quarter: 2010Q1

REPORT INFORMATION
  Report Type: 
  Country: None (occurrence: None)
  Receive Date: 20100319
  Receipt Date: 20100311
  Transmission Date: 20100710
  Serious: Yes (Hospitalization)
  Sender: FDA-Public Use
  Company Number: US-BIOGENIDEC-2009BI039089

PATIENT
  Age: 41 Year
  Sex: Female

DRUGS (1)
  1. TYSABRI [Suspect]
     Indication: MULTIPLE SCLEROSIS
     Route: 042
     Dates: start: 20081128, end: 20091124

REACTIONS (7)
  - ADVERSE DRUG REACTION [None]
  - ANTIBODY TEST ABNORMAL [None]
  - FACIAL PALSY [None]
  - FAECAL INCONTINENCE [None]
  - INFUSION RELATED REACTION [None]
  - REGURGITATION [None]
  - VOMITING [None]
